FAERS Safety Report 9382584 (Version 1)
Quarter: 2013Q3

REPORT INFORMATION
  Report Type: Spontaneous
  Country: US (occurrence: US)
  Receive Date: 20130703
  Receipt Date: 20130703
  Transmission Date: 20140515
  Serious: No
  Sender: FDA-Public Use
  Company Number: US-B.I. PHARMACEUTICALS,INC./RIDGEFIELD-2013-BI-18627BP

PATIENT
  Sex: Male
  Weight: 90 kg

DRUGS (7)
  1. SPIRIVA [Suspect]
     Indication: CHRONIC OBSTRUCTIVE PULMONARY DISEASE
     Dosage: 36 MCG
     Route: 055
     Dates: start: 2004
  2. ADVAIR [Concomitant]
     Indication: CHRONIC OBSTRUCTIVE PULMONARY DISEASE
     Route: 055
     Dates: start: 2004
  3. LOSARTAN [Concomitant]
     Indication: HYPERTENSION
     Route: 048
  4. CADUET [Concomitant]
     Indication: BLOOD CHOLESTEROL INCREASED
     Route: 048
  5. UROXATRAL [Concomitant]
     Indication: DYSURIA
     Route: 048
  6. METOPROLOL [Concomitant]
     Indication: HYPERTENSION
     Route: 048
  7. DIGOXIN [Concomitant]
     Route: 048

REACTIONS (4)
  - Arthritis [Not Recovered/Not Resolved]
  - Trigger finger [Not Recovered/Not Resolved]
  - Rotator cuff syndrome [Not Recovered/Not Resolved]
  - Overdose [Not Recovered/Not Resolved]
